FAERS Safety Report 10516534 (Version 1)
Quarter: 2014Q4

REPORT INFORMATION
  Report Type: Spontaneous
  Country: US (occurrence: None)
  Receive Date: 20141003
  Receipt Date: 20141003
  Transmission Date: 20150528
  Serious: Yes (Other)
  Sender: FDA-Public Use
  Company Number: 1358979

PATIENT
  Age: 51 Year
  Sex: Female

DRUGS (3)
  1. SOVALDI [Suspect]
     Active Substance: SOFOSBUVIR
     Indication: CHRONIC HEPATITIS C
     Dosage: 400 MG 1 IN 1 D
     Route: 048
     Dates: start: 20140215, end: 20140504
  2. RIBAVIRIN (RIBAVIRIN) [Suspect]
     Active Substance: RIBAVIRIN
     Indication: CHRONIC HEPATITIS C
     Dosage: IN DIVIDED DOSES, (1 IN 1 D) UNKNOWN
     Dates: start: 20140215, end: 20140504
  3. PEGASYS [Suspect]
     Active Substance: PEGINTERFERON ALFA-2A
     Indication: CHRONIC HEPATITIS C
     Dosage: 1 IN 1 WK
     Route: 058
     Dates: start: 20140215, end: 20140504

REACTIONS (16)
  - Crying [None]
  - Asthenia [None]
  - Suicidal ideation [None]
  - Fatigue [None]
  - Arthralgia [None]
  - Injection site extravasation [None]
  - Muscle spasms [None]
  - Influenza [None]
  - Alopecia [None]
  - Emotional disorder [None]
  - Rash pruritic [None]
  - Underdose [None]
  - Drug administration error [None]
  - Insomnia [None]
  - Headache [None]
  - Chills [None]
